FAERS Safety Report 4407561-7 (Version None)
Quarter: 2004Q3

REPORT INFORMATION
  Report Type: 
  Country: None (occurrence: None)
  Receive Date: 20040726
  Receipt Date: 20040319
  Transmission Date: 20050211
  Serious: No
  Sender: FDA-Public Use
  Company Number: US-GLAXOSMITHKLINE-A0503535A

PATIENT
  Age: 53 Year
  Sex: Female

DRUGS (1)
  1. HYCAMTIN [Suspect]
     Dosage: 1MGM2 CYCLIC
     Route: 042
     Dates: start: 20040301

REACTIONS (1)
  - PO2 DECREASED [None]
